FAERS Safety Report 6243112-2 (Version None)
Quarter: 2009Q2

REPORT INFORMATION
  Report Type: 
  Country: None (occurrence: None)
  Receive Date: 20090624
  Receipt Date: 20090615
  Transmission Date: 20091009
  Serious: Yes (Hospitalization, Disabling)
  Sender: FDA-Public Use
  Company Number: JP-ASTRAZENECA-2007AP02311

PATIENT
  Age: 29 Year
  Sex: Male
  Weight: 63 kg

DRUGS (4)
  1. ANAPEINE [Suspect]
     Indication: NERVE BLOCK
     Route: 061
     Dates: start: 20070412, end: 20070412
  2. XYLOCAINE [Suspect]
     Indication: NERVE BLOCK
     Route: 061
     Dates: start: 20070412, end: 20070412
  3. UNKNOWNDRUG [Concomitant]
     Indication: GENERAL ANAESTHESIA
     Route: 042
     Dates: start: 20070412, end: 20070412
  4. FENTANEST [Concomitant]
     Indication: GENERAL ANAESTHESIA
     Route: 042
     Dates: start: 20070412, end: 20070412

REACTIONS (3)
  - DRUG ADMINISTRATION ERROR [None]
  - MONOPLEGIA [None]
  - PERIPHERAL NERVE INJURY [None]
